FAERS Safety Report 12928101 (Version 2)
Quarter: 2016Q4

REPORT INFORMATION
  Report Type: Spontaneous
  Country: CN (occurrence: CN)
  Receive Date: 20161110
  Receipt Date: 20161110
  Transmission Date: 20170207
  Serious: Yes (Other)
  Sender: FDA-Public Use
  Company Number: CN-CIPLA LTD.-2016CN20772

PATIENT

DRUGS (1)
  1. TOPIRAMATE. [Suspect]
     Active Substance: TOPIRAMATE
     Indication: PARTIAL SEIZURES
     Dosage: 100 MG, PER DAY
     Route: 065

REACTIONS (6)
  - Pollakiuria [Recovered/Resolved]
  - Anger [Recovered/Resolved]
  - Weight decreased [Unknown]
  - Spermatorrhoea [Recovered/Resolved]
  - Loss of libido [Recovered/Resolved]
  - Asthenia [Recovered/Resolved]
